FAERS Safety Report 8596276-X (Version None)
Quarter: 2012Q3

REPORT INFORMATION
  Report Type: 
  Country: None (occurrence: None)
  Receive Date: 20120815
  Receipt Date: 20120801
  Transmission Date: 20120928
  Serious: Yes (Hospitalization)
  Sender: FDA-Public Use
  Company Number: JP-WATSON-2012-11719

PATIENT
  Sex: Male

DRUGS (16)
  1. ADALAT [Concomitant]
     Indication: HYPERTENSION
     Dosage: 20 MG, UNK
     Route: 048
  2. EVIPROSTAT [Concomitant]
     Indication: DYSURIA
     Dosage: 3 DOSAGE FORMS
     Route: 048
     Dates: start: 20120501
  3. SANDIMMUNE [Concomitant]
     Indication: RENAL TRANSPLANT
     Dosage: 125 MG, UNK
     Route: 048
  4. BREDININ [Concomitant]
     Dosage: UNK
     Route: 048
     Dates: end: 20120101
  5. PREDNISOLONE [Concomitant]
     Indication: RENAL TRANSPLANT
     Dosage: 5 MG, UNK
     Route: 048
     Dates: start: 19981105
  6. IMURAN [Concomitant]
     Indication: RENAL TRANSPLANT
     Dosage: 50 MG, UNK
     Route: 048
  7. INDAPAMIDE [Concomitant]
     Indication: HYPERTENSION
     Dosage: 1 MG, UNK
     Route: 048
  8. KOLANTYL                           /00130401/ [Concomitant]
     Indication: GASTRITIS
     Dosage: 2 GRAM, UNK
     Route: 048
  9. ASPIRIN [Concomitant]
     Indication: PRODUCT USED FOR UNKNOWN INDICATION
     Dosage: UNK
     Route: 048
  10. ASPIRIN [Concomitant]
     Dosage: 2 G, UNK
     Route: 048
     Dates: start: 20120529, end: 20120604
  11. SULFAMETHOXAZOLE AND TRIMETHOPRIM [Suspect]
     Indication: BRONCHITIS CHRONIC
     Dosage: 1 TAB Q 2ND DAY (0.5 DOSAGE FORMS)
     Route: 048
     Dates: start: 20110420
  12. POVIDONE IODINE [Concomitant]
     Dosage: UNK
     Route: 049
     Dates: start: 20120529
  13. RAPAFLO [Suspect]
     Indication: DYSURIA
     Dosage: 4 MG, DAILY
     Route: 048
     Dates: start: 20120530, end: 20120626
  14. POVIDONE IODINE [Concomitant]
     Indication: PRODUCT USED FOR UNKNOWN INDICATION
     Dosage: UNK
     Route: 049
  15. URINORM [Concomitant]
     Indication: HYPERURICAEMIA
     Dosage: 50 MG, UNK
     Route: 048
  16. BREDININ [Concomitant]
     Indication: RENAL TRANSPLANT
     Dosage: 50 MG, UNK
     Route: 048
     Dates: start: 19881112

REACTIONS (1)
  - NEUTROPENIA [None]
